FAERS Safety Report 9505335 (Version 1)
Quarter: 2013Q1

REPORT INFORMATION
  Report Type: Spontaneous
  Country: US (occurrence: None)
  Receive Date: 20130220
  Receipt Date: 20130220
  Transmission Date: 20140127
  Serious: No
  Sender: FDA-Public Use
  Company Number: 1000040496

PATIENT
  Age: 58 Year
  Sex: Male

DRUGS (3)
  1. VIIBRYD [Suspect]
     Indication: STRESS
     Dosage: (10 MG, 1 IN 1 D)
     Route: 048
     Dates: start: 20121018, end: 20121024
  2. BLOOD PRESSURE MEDICATION NOS (BLOOD PRESSURE MEDICATION NOS) (BLOOD PRESSURE MEDICATIO NOS) [Concomitant]
  3. CHOLESTEROL MEDICATION NOS (CHOLESTEROL MEDICATION NOS) (CHOLESTEROL MEDICATION NOS) [Concomitant]

REACTIONS (2)
  - Anorgasmia [None]
  - Off label use [None]
